FAERS Safety Report 22323739 (Version 1)
Quarter: 2023Q2

REPORT INFORMATION
  Report Type: Spontaneous
  Country: US (occurrence: None)
  Receive Date: 20230512
  Receipt Date: 20230512
  Transmission Date: 20230721
  Serious: Yes (Other)
  Sender: FDA-Public Use
  Company Number: None

PATIENT
  Sex: 0

DRUGS (1)
  1. ERYTHROMYCIN [Suspect]
     Active Substance: ERYTHROMYCIN
     Indication: Eye irritation
     Dosage: FREQUENCY : AT BEDTIME;?
     Route: 047
     Dates: start: 20220524, end: 20220724

REACTIONS (2)
  - Eye irritation [None]
  - Condition aggravated [None]

NARRATIVE: CASE EVENT DATE: 20220524
